FAERS Safety Report 4837416-5 (Version None)
Quarter: 2005Q4

REPORT INFORMATION
  Report Type: 
  Country: None (occurrence: None)
  Receive Date: 20051128
  Receipt Date: 20051115
  Transmission Date: 20060501
  Serious: Yes (Hospitalization)
  Sender: FDA-Public Use
  Company Number: DE-JNJFOC-20051103854

PATIENT
  Age: 24 Year
  Sex: Male

DRUGS (11)
  1. HALDOL [Suspect]
     Route: 048
  2. HALDOL [Suspect]
     Route: 048
  3. HALDOL [Suspect]
     Route: 048
  4. AMISULPIRIDE [Suspect]
     Route: 048
  5. AMISULPIRIDE [Suspect]
     Route: 048
  6. AMISULPIRIDE [Suspect]
     Route: 048
  7. DIAZEPAM [Concomitant]
     Route: 048
  8. DIAZEPAM [Concomitant]
     Route: 048
  9. DIAZEPAM [Concomitant]
     Route: 048
  10. DIAZEPAM [Concomitant]
     Route: 048
  11. AKINETON [Concomitant]

REACTIONS (3)
  - BLOOD PROLACTIN INCREASED [None]
  - BREAST SWELLING [None]
  - GYNAECOMASTIA [None]
